FAERS Safety Report 19612490 (Version 1)
Quarter: 2021Q3

REPORT INFORMATION
  Report Type: Spontaneous
  Country: JP (occurrence: JP)
  Receive Date: 20210727
  Receipt Date: 20210727
  Transmission Date: 20211014
  Serious: Yes (Other)
  Sender: FDA-Public Use
  Company Number: JP-JNJFOC-20210753625

PATIENT
  Age: 38 Year
  Sex: Male

DRUGS (2)
  1. XARELTO [Suspect]
     Active Substance: RIVAROXABAN
     Indication: VARICOSE VEIN
     Dosage: 15 MG, BID
     Route: 048
  2. XARELTO [Suspect]
     Active Substance: RIVAROXABAN
     Indication: VENOUS THROMBOSIS LIMB
     Dosage: 15 MG, QD
     Route: 048

REACTIONS (1)
  - Post thrombotic syndrome [Unknown]

NARRATIVE: CASE EVENT DATE: 20210720
